FAERS Safety Report 8063351-8 (Version None)
Quarter: 2012Q1

REPORT INFORMATION
  Report Type: 
  Country: None (occurrence: None)
  Receive Date: 20120123
  Receipt Date: 20120117
  Transmission Date: 20120608
  Serious: Yes (Death, Hospitalization, Other)
  Sender: FDA-Public Use
  Company Number: PHHY2012DE005007

PATIENT
  Age: 56 Year
  Sex: Male

DRUGS (4)
  1. ACYCLOVIR [Concomitant]
  2. ALEMTUZUMAB [Concomitant]
     Dosage: 20 MG, UNK
  3. PENTAMIDINE [Concomitant]
  4. CYCLOSPORINE [Suspect]
     Indication: PROPHYLAXIS AGAINST GRAFT VERSUS HOST DISEASE
     Route: 042

REACTIONS (7)
  - MULTI-ORGAN FAILURE [None]
  - DEATH [None]
  - SEPSIS [None]
  - PNEUMONIA [None]
  - PYREXIA [None]
  - GRAFT VERSUS HOST DISEASE IN SKIN [None]
  - TOXOPLASMOSIS [None]
